FAERS Safety Report 8180646-8 (Version None)
Quarter: 2012Q1

REPORT INFORMATION
  Report Type: 
  Country: None (occurrence: None)
  Receive Date: 20120302
  Receipt Date: 20120223
  Transmission Date: 20120608
  Serious: Yes (Hospitalization)
  Sender: FDA-Public Use
  Company Number: FR-ROCHE-1041027

PATIENT
  Sex: Female

DRUGS (6)
  1. MYCOPHENOLATE MOFETIL (CELLCEPT) [Suspect]
     Indication: TRANSPLANT REJECTION
  2. CYCLOSPORINE [Suspect]
     Indication: TRANSPLANT REJECTION
  3. MYCOPHENOLATE MOFETIL (CELLCEPT) [Suspect]
     Indication: RENAL TRANSPLANT
     Dosage: 500 MG TABLET
     Route: 002
     Dates: start: 20111125, end: 20120217
  4. PREDNISOLONE SODIUM METASULFOBENZOATE [Suspect]
     Indication: TRANSPLANT REJECTION
  5. CYCLOSPORINE [Suspect]
     Indication: RENAL TRANSPLANT
     Dosage: 100 MG CAPSULE
     Route: 002
     Dates: start: 20111125
  6. PREDNISOLONE SODIUM METASULFOBENZOATE [Suspect]
     Indication: RENAL TRANSPLANT
     Route: 002
     Dates: start: 20111125

REACTIONS (4)
  - ENTEROCOLITIS HAEMORRHAGIC [None]
  - ANAEMIA [None]
  - DYSPNOEA [None]
  - TRANSFUSION [None]
